FAERS Safety Report 17113554 (Version 4)
Quarter: 2021Q4

REPORT INFORMATION
  Report Type: Report from Study
  Country: CZ (occurrence: CZ)
  Receive Date: 20191205
  Receipt Date: 20211202
  Transmission Date: 20220303
  Serious: Yes (Hospitalization, Other)
  Sender: FDA-Public Use
  Company Number: None

PATIENT
  Age: 179 Month
  Sex: Female
  Weight: 42.7 kg

DRUGS (26)
  1. MIDOSTAURIN [Suspect]
     Active Substance: MIDOSTAURIN
     Indication: Acute myeloid leukaemia
     Dosage: 1.6 ML, 2 TIMES PER DAY
     Route: 048
     Dates: start: 20190330
  2. CYTARABINE [Suspect]
     Active Substance: CYTARABINE
     Indication: Acute myeloid leukaemia
     Dosage: 2680 MG DAILY
     Route: 042
     Dates: start: 20190426
  3. FLUDARABINE [Suspect]
     Active Substance: FLUDARABINE PHOSPHATE
     Indication: Acute myeloid leukaemia
     Dosage: 40 MG DAILY
     Route: 042
     Dates: start: 20190426
  4. IDARUBICIN [Suspect]
     Active Substance: IDARUBICIN
     Indication: Acute myeloid leukaemia
     Dosage: 16 MG DAILY
     Route: 042
     Dates: start: 20190427
  5. SULFAMETHOXAZOLE\TRIMETHOPRIM [Concomitant]
     Active Substance: SULFAMETHOXAZOLE\TRIMETHOPRIM
     Indication: Prophylaxis
     Dosage: UNK
     Route: 065
     Dates: start: 20190413, end: 20190415
  6. SULFAMETHOXAZOLE\TRIMETHOPRIM [Concomitant]
     Active Substance: SULFAMETHOXAZOLE\TRIMETHOPRIM
     Indication: Prophylaxis
     Dosage: UNK
     Route: 065
     Dates: start: 20190420, end: 20190421
  7. SULFAMETHOXAZOLE\TRIMETHOPRIM [Concomitant]
     Active Substance: SULFAMETHOXAZOLE\TRIMETHOPRIM
     Dosage: UNK
     Route: 065
     Dates: start: 20190504, end: 20190506
  8. SERTRALINE HYDROCHLORIDE [Concomitant]
     Active Substance: SERTRALINE HYDROCHLORIDE
     Indication: Antidepressant therapy
     Dosage: UNK
     Route: 065
     Dates: start: 20190329
  9. METHYLPREDNISOLONE [Concomitant]
     Active Substance: METHYLPREDNISOLONE
     Indication: Febrile neutropenia
     Dosage: UNK
     Route: 065
     Dates: start: 20190420, end: 20190423
  10. METHYLPREDNISOLONE [Concomitant]
     Active Substance: METHYLPREDNISOLONE
     Dosage: UNK
     Route: 065
     Dates: start: 20190507, end: 20190507
  11. MIDAZOLAM [Concomitant]
     Active Substance: MIDAZOLAM
     Indication: Acute myeloid leukaemia
     Dosage: UNK
     Route: 065
     Dates: start: 20190412, end: 20190412
  12. MIDAZOLAM [Concomitant]
     Active Substance: MIDAZOLAM
     Dosage: UNK
     Route: 065
     Dates: start: 20190423, end: 20190423
  13. MIDAZOLAM [Concomitant]
     Active Substance: MIDAZOLAM
     Dosage: UNK
     Route: 065
     Dates: start: 20190426, end: 20190426
  14. NALBUPHINE [Concomitant]
     Active Substance: NALBUPHINE
     Indication: Acute myeloid leukaemia
     Dosage: UNK
     Route: 065
     Dates: start: 20190412, end: 20190412
  15. NALBUPHINE [Concomitant]
     Active Substance: NALBUPHINE
     Dosage: UNK
     Route: 065
     Dates: start: 20190423, end: 20190423
  16. NALBUPHINE [Concomitant]
     Active Substance: NALBUPHINE
     Dosage: UNK
     Route: 065
     Dates: start: 20190426, end: 20190426
  17. METAMIZOLE [Concomitant]
     Active Substance: METAMIZOLE
     Indication: Febrile neutropenia
     Dosage: UNK
     Route: 065
     Dates: start: 20190415, end: 20190420
  18. METAMIZOLE [Concomitant]
     Active Substance: METAMIZOLE
     Indication: Headache
     Dosage: UNK
     Route: 065
     Dates: start: 20190428, end: 20190430
  19. METAMIZOLE [Concomitant]
     Active Substance: METAMIZOLE
     Dosage: UNK
     Route: 065
     Dates: start: 20190507, end: 20190507
  20. POSACONAZOLE [Concomitant]
     Active Substance: POSACONAZOLE
     Indication: Prophylaxis
     Dosage: UNK
     Route: 065
     Dates: start: 20190430
  21. POSACONAZOLE [Concomitant]
     Active Substance: POSACONAZOLE
     Dosage: UNK
     Route: 065
     Dates: start: 20190329, end: 20190425
  22. TRIPTORELIN [Concomitant]
     Active Substance: TRIPTORELIN
     Indication: Menopause
     Dosage: UNK
     Route: 065
     Dates: start: 20190502, end: 20190502
  23. PENICILLIN [Concomitant]
     Active Substance: PENICILLIN
     Indication: Antibiotic prophylaxis
     Dosage: UNK
     Route: 065
     Dates: start: 20190502, end: 20190507
  24. PIPERACILLIN AND TAZOBACTAM [Concomitant]
     Active Substance: PIPERACILLIN SODIUM\TAZOBACTAM SODIUM
     Indication: Febrile neutropenia
     Dosage: UNK
     Route: 065
     Dates: start: 20190415, end: 20190423
  25. TEICOPLANIN [Concomitant]
     Active Substance: TEICOPLANIN
     Indication: Febrile neutropenia
     Dosage: UNK
     Route: 065
     Dates: start: 20190418, end: 20190422
  26. ACETAMINOPHEN [Concomitant]
     Active Substance: ACETAMINOPHEN
     Indication: Febrile neutropenia
     Dosage: UNK
     Route: 065
     Dates: start: 20190418, end: 20190420

REACTIONS (3)
  - Neutropenia [Recovered/Resolved]
  - White blood cell count decreased [Recovered/Resolved]
  - Thrombocytopenia [Recovered/Resolved]

NARRATIVE: CASE EVENT DATE: 20190502
